FAERS Safety Report 18287878 (Version 1)
Quarter: 2020Q3

REPORT INFORMATION
  Report Type: Spontaneous
  Country: US (occurrence: US)
  Receive Date: 20200918
  Receipt Date: 20200918
  Transmission Date: 20201103
  Serious: Yes (Death, Hospitalization)
  Sender: FDA-Public Use
  Company Number: None

PATIENT
  Age: 65 Year
  Sex: Female

DRUGS (9)
  1. CYCLOBENZAPRINE. [Concomitant]
     Active Substance: CYCLOBENZAPRINE
  2. TAMSULSION [Concomitant]
  3. DULOXETINE. [Concomitant]
     Active Substance: DULOXETINE
  4. PEMBROLIZUMAB. [Suspect]
     Active Substance: PEMBROLIZUMAB
     Indication: OVARIAN CANCER
     Dosage: ?          OTHER FREQUENCY:21 DAYS;?
     Route: 042
     Dates: start: 20200807, end: 20200901
  5. MIRALAX [Concomitant]
     Active Substance: POLYETHYLENE GLYCOL 3350
  6. PROCHLORPERAZINE. [Concomitant]
     Active Substance: PROCHLORPERAZINE
  7. FAMOTIDINE. [Concomitant]
     Active Substance: FAMOTIDINE
  8. IBUPROFEN. [Concomitant]
     Active Substance: IBUPROFEN
  9. LORATADINE. [Concomitant]
     Active Substance: LORATADINE

REACTIONS (6)
  - Troponin increased [None]
  - Acute myocardial infarction [None]
  - Dyspnoea [None]
  - Hypotension [None]
  - Pleural effusion [None]
  - Ventricular tachycardia [None]

NARRATIVE: CASE EVENT DATE: 20200918
